FAERS Safety Report 12083398 (Version 1)
Quarter: 2016Q1

REPORT INFORMATION
  Report Type: Spontaneous
  Country: US (occurrence: US)
  Receive Date: 20160217
  Receipt Date: 20160217
  Transmission Date: 20160526
  Serious: No
  Sender: FDA-Public Use
  Company Number: US-MYLANLABS-2015M1022964

PATIENT
  Age: 65 Year
  Sex: Female

DRUGS (2)
  1. EPIPEN [Suspect]
     Active Substance: EPINEPHRINE
     Indication: ALLERGY TO STING
     Dosage: UNK UNK, ONCE
     Dates: start: 20150628, end: 20150628
  2. EPIPEN [Suspect]
     Active Substance: EPINEPHRINE
     Indication: ARTHROPOD BITE

REACTIONS (5)
  - Injection site hypoaesthesia [Not Recovered/Not Resolved]
  - Accidental exposure to product [Recovered/Resolved]
  - Injection site bruising [Not Recovered/Not Resolved]
  - Skeletal injury [Recovered/Resolved]
  - Injection site haemorrhage [Recovered/Resolved]

NARRATIVE: CASE EVENT DATE: 20150628
